FAERS Safety Report 5955441-8 (Version None)
Quarter: 2008Q4

REPORT INFORMATION
  Report Type: 
  Country: None (occurrence: None)
  Receive Date: 20081117
  Receipt Date: 20081110
  Transmission Date: 20090506
  Serious: Yes (Other)
  Sender: FDA-Public Use
  Company Number: GB-TEVA-180450ISR

PATIENT
  Age: 75 Year
  Sex: Male

DRUGS (3)
  1. FLUDARABINE PHOSPHATE [Suspect]
     Indication: WALDENSTROM'S MACROGLOBULINAEMIA
  2. MITOXANTRONE [Concomitant]
  3. DEXAMETHASONE TAB [Concomitant]

REACTIONS (2)
  - DIFFUSE LARGE B-CELL LYMPHOMA [None]
  - DRUG INEFFECTIVE [None]
